FAERS Safety Report 6255980-9 (Version None)
Quarter: 2009Q3

REPORT INFORMATION
  Report Type: 
  Country: None (occurrence: None)
  Receive Date: 20090706
  Receipt Date: 20090630
  Transmission Date: 20100115
  Serious: Yes (Other)
  Sender: FDA-Public Use
  Company Number: US-BRISTOL-MYERS SQUIBB COMPANY-14687578

PATIENT

DRUGS (1)
  1. REYATAZ [Suspect]

REACTIONS (1)
  - DRUG INEFFECTIVE [None]
